FAERS Safety Report 16638854 (Version 1)
Quarter: 2019Q3

REPORT INFORMATION
  Report Type: Spontaneous
  Country: US (occurrence: US)
  Receive Date: 20190726
  Receipt Date: 20190726
  Transmission Date: 20191004
  Serious: Yes (Other)
  Sender: FDA-Public Use
  Company Number: US-PFIZER INC-2019316090

PATIENT
  Age: 41 Year
  Sex: Male

DRUGS (3)
  1. SEROQUEL [Suspect]
     Active Substance: QUETIAPINE FUMARATE
     Dosage: 100 MG, 1X/DAY
  2. KLONOPIN [Suspect]
     Active Substance: CLONAZEPAM
     Dosage: 2 MG, DAILY
  3. FENTANYL CITRATE. [Suspect]
     Active Substance: FENTANYL CITRATE
     Dosage: UNK
     Route: 042

REACTIONS (5)
  - Overdose [Unknown]
  - Apparent death [Unknown]
  - Respiratory arrest [Unknown]
  - Drug abuse [Unknown]
  - Cyanosis [Unknown]

NARRATIVE: CASE EVENT DATE: 20190627
